FAERS Safety Report 4434195-0 (Version None)
Quarter: 2004Q3

REPORT INFORMATION
  Report Type: 
  Country: None (occurrence: None)
  Receive Date: 20040825
  Receipt Date: 20040816
  Transmission Date: 20050211
  Serious: Yes (Life-Threatening, Hospitalization)
  Sender: FDA-Public Use
  Company Number: 0400036EN0020P

PATIENT
  Age: 8 Year
  Sex: Female

DRUGS (1)
  1. ONCASPAR [Suspect]
     Indication: LEUKAEMIA
     Dosage: 1000 IU
     Dates: start: 20040809, end: 20040809

REACTIONS (1)
  - ANGIONEUROTIC OEDEMA [None]
